FAERS Safety Report 5337802-3 (Version None)
Quarter: 2007Q2

REPORT INFORMATION
  Report Type: 
  Country: None (occurrence: None)
  Receive Date: 20070530
  Receipt Date: 20070517
  Transmission Date: 20071010
  Serious: Yes (Death)
  Sender: FDA-Public Use
  Company Number: GB-NOVOPROD-261666

PATIENT
  Sex: Female
  Weight: 49 kg

DRUGS (11)
  1. NOVORAPID FLEXPEN [Suspect]
     Indication: INSULIN-REQUIRING TYPE II DIABETES MELLITUS
     Dosage: 20 IU, QD
     Route: 058
     Dates: start: 20050419, end: 20070303
  2. INSULIN DETEMIR FLEXPEN [Suspect]
     Indication: INSULIN-REQUIRING TYPE II DIABETES MELLITUS
     Dosage: 5IU, QD
     Route: 058
     Dates: start: 20060719, end: 20070303
  3. ASPIRIN [Concomitant]
     Dosage: 75 MG, QD
     Route: 048
     Dates: start: 19961001, end: 20070303
  4. GLICLAZIDE [Concomitant]
     Dosage: 320 MG, QD
     Route: 048
     Dates: start: 20000221, end: 20070303
  5. METFORMIN HCL [Concomitant]
     Dosage: 2550 MG, QD
     Route: 048
     Dates: start: 20010301, end: 20070303
  6. RAMIPRIL [Concomitant]
     Dosage: 10 MG, QD
     Route: 048
     Dates: start: 20000101, end: 20070303
  7. ATORVASTATIN [Concomitant]
     Dosage: 20 MG, QD
     Route: 048
     Dates: start: 19981001, end: 20070303
  8. FELODIPINE [Concomitant]
     Dosage: 90 MG, QD
     Route: 048
     Dates: start: 20060407, end: 20070303
  9. TELMISARTAN [Concomitant]
     Dosage: 20 MG, QD
     Route: 048
     Dates: start: 20060404, end: 20070303
  10. PARACETAMOL [Concomitant]
     Dosage: 500 MG, QD
     Route: 048
     Dates: start: 20060317, end: 20070303
  11. FELODIPINE [Concomitant]
     Dosage: 500 MG, QD
     Route: 048
     Dates: start: 20050622, end: 20070303

REACTIONS (5)
  - ARTERIOSCLEROSIS CORONARY ARTERY [None]
  - CARDIAC FAILURE CONGESTIVE [None]
  - DEATH [None]
  - DIARRHOEA [None]
  - MYOCARDIAL ISCHAEMIA [None]
